FAERS Safety Report 8965869 (Version 1)
Quarter: 2012Q4

REPORT INFORMATION
  Report Type: 
  Country: US (occurrence: US)
  Receive Date: 20121217
  Receipt Date: 20121217
  Transmission Date: 20130627
  Serious: Yes (Other)
  Sender: FDA-Public Use
  Company Number: US-AMGEN-USASP2012080482

PATIENT
  Sex: Male

DRUGS (1)
  1. ARANESP [Suspect]
     Indication: ANAEMIA
     Dosage: UNK UNK, qmo

REACTIONS (3)
  - Plasma cell myeloma [Unknown]
  - Glomerular filtration rate decreased [Unknown]
  - Laboratory test abnormal [Unknown]
